FAERS Safety Report 6239116-6 (Version None)
Quarter: 2009Q2

REPORT INFORMATION
  Report Type: 
  Country: None (occurrence: None)
  Receive Date: 20090622
  Receipt Date: 20090611
  Transmission Date: 20091009
  Serious: Yes (Other)
  Sender: FDA-Public Use
  Company Number: FR-JNJFOC-20090604428

PATIENT

DRUGS (2)
  1. INFLIXIMAB [Suspect]
     Indication: RHEUMATOID ARTHRITIS
     Dosage: WEEKS 0, 2, 8 ON UNREPORTED DATES BETWEEN FEB-2000 AND MAR-2004
     Route: 042
  2. DISEASE MODIFYING ANTIRHEUMATIC DRUGS [Concomitant]
     Indication: RHEUMATOID ARTHRITIS
     Dosage: ON UNREPORTED DATES BETWEEN FEB-2000 AND MAR-2004

REACTIONS (1)
  - TUBERCULOUS PLEURISY [None]
